FAERS Safety Report 6324211-3 (Version None)
Quarter: 2009Q3

REPORT INFORMATION
  Report Type: 
  Country: None (occurrence: None)
  Receive Date: 20090824
  Receipt Date: 20090514
  Transmission Date: 20100115
  Serious: No
  Sender: FDA-Public Use
  Company Number: US-ABBOTT-09P-163-0574074-00

PATIENT
  Sex: Female
  Weight: 77.18 kg

DRUGS (20)
  1. NIASPAN [Suspect]
     Indication: HIGH DENSITY LIPOPROTEIN DECREASED
     Dates: start: 20090512
  2. ASPIRIN [Concomitant]
     Indication: PROPHYLAXIS
  3. PLAVIX [Concomitant]
     Indication: CARDIAC OPERATION
  4. DIGOXIN [Concomitant]
     Indication: CARDIAC OPERATION
  5. IMDUR [Concomitant]
     Indication: CARDIAC DISORDER
  6. TOPROL-XL [Concomitant]
     Indication: HYPERTENSION
  7. FOLIC ACID [Concomitant]
     Indication: VITAMIN SUPPLEMENTATION
  8. LASIX [Concomitant]
     Indication: HYPERTENSION
  9. FISH OIL [Concomitant]
     Indication: MEDICAL DIET
     Dosage: DAILY
  10. SYNTHROID [Concomitant]
     Indication: HYPOTHYROIDISM
  11. LISINOPRIL [Concomitant]
     Indication: HYPERTENSION
  12. POTASSIUM CHLORIDE [Concomitant]
     Indication: CARDIAC DISORDER
  13. IRON [Concomitant]
     Indication: MINERAL SUPPLEMENTATION
  14. MULTI-VITAMIN [Concomitant]
     Indication: VITAMIN SUPPLEMENTATION
     Dosage: DAILY
  15. VIT B 12 [Concomitant]
     Indication: VITAMIN SUPPLEMENTATION
     Dosage: DAILY
  16. DILTIAZEM [Concomitant]
     Indication: CARDIAC DISORDER
  17. PRAVASTATIN [Concomitant]
     Indication: BLOOD CHOLESTEROL INCREASED
  18. NEURONTIN [Concomitant]
     Indication: MUSCLE SPASMS
  19. SINGULAIR [Concomitant]
     Indication: ASTHMA
  20. INSULIN [Concomitant]
     Indication: DIABETES MELLITUS
     Dosage: SLIDING SCALE: TAKE 2 U IF BS BETWEEN 120 AND 150
     Route: 058

REACTIONS (2)
  - DIZZINESS [None]
  - VISION BLURRED [None]
